FAERS Safety Report 7816813-X (Version None)
Quarter: 2011Q4

REPORT INFORMATION
  Report Type: 
  Country: None (occurrence: None)
  Receive Date: 20111017
  Receipt Date: 20111007
  Transmission Date: 20120403
  Serious: Yes (Other)
  Sender: FDA-Public Use
  Company Number: US-ASTELLAS-2011US006709

PATIENT

DRUGS (3)
  1. AMEVIVE [Suspect]
     Indication: RENAL TRANSPLANT
     Dosage: 15 MG, WEEKLY
     Route: 058
     Dates: start: 20100722, end: 20110927
  2. AMEVIVE [Suspect]
     Dosage: 15 MG, MONTHLY
     Route: 058
  3. AMEVIVE [Suspect]
     Dosage: 7.5 MG, UNKNOWN/D
     Route: 042

REACTIONS (2)
  - OFF LABEL USE [None]
  - ANTIBODY TEST POSITIVE [None]
